FAERS Safety Report 21018527 (Version 2)
Quarter: 2022Q3

REPORT INFORMATION
  Report Type: Spontaneous
  Country: US (occurrence: US)
  Receive Date: 20220628
  Receipt Date: 20220720
  Transmission Date: 20221027
  Serious: Yes (Hospitalization, Other)
  Sender: FDA-Public Use
  Company Number: US-BRAINTREE LABORATORIES, INC.-2022BTE00508

PATIENT
  Age: 50 Year
  Sex: Male
  Weight: 88.435 kg

DRUGS (6)
  1. SUTAB [Suspect]
     Active Substance: MAGNESIUM SULFATE\POTASSIUM CHLORIDE\SODIUM SULFATE
     Indication: Colonoscopy
     Dosage: 1 X 12 TABLETS,  1X
     Route: 048
     Dates: start: 20220607, end: 20220607
  2. SUTAB [Suspect]
     Active Substance: MAGNESIUM SULFATE\POTASSIUM CHLORIDE\SODIUM SULFATE
     Indication: Endoscopy
  3. MAGNESIUM CITRATE [Suspect]
     Active Substance: MAGNESIUM CITRATE
     Indication: Colonoscopy
     Dosage: 1.5 BOTTLES, 1X
     Dates: start: 20220608, end: 20220608
  4. MAGNESIUM CITRATE [Suspect]
     Active Substance: MAGNESIUM CITRATE
     Indication: Endoscopy
  5. BISACODYL [Suspect]
     Active Substance: BISACODYL
     Indication: Colonoscopy
     Dosage: 4 TABLETS, 1X
     Dates: start: 20220608, end: 20220608
  6. BISACODYL [Suspect]
     Active Substance: BISACODYL
     Indication: Endoscopy

REACTIONS (12)
  - Aspiration [Recovered/Resolved]
  - Dehydration [Recovered/Resolved]
  - Oxygen saturation decreased [Recovered/Resolved]
  - Intestinal ulcer [Recovered/Resolved]
  - Gastric ulcer [Recovered/Resolved]
  - Dyspnoea [Recovered/Resolved]
  - Hyperhidrosis [Recovered/Resolved]
  - Feeling cold [Recovered/Resolved]
  - Gastrointestinal bacterial infection [Recovered/Resolved]
  - Cold sweat [Recovered/Resolved]
  - Helicobacter infection [Unknown]
  - Vomiting [Recovered/Resolved]

NARRATIVE: CASE EVENT DATE: 20220601
